FAERS Safety Report 6381891-4 (Version None)
Quarter: 2009Q3

REPORT INFORMATION
  Report Type: 
  Country: None (occurrence: None)
  Receive Date: 20090930
  Receipt Date: 20090921
  Transmission Date: 20100115
  Serious: Yes (Hospitalization)
  Sender: FDA-Public Use
  Company Number: CA-JNJFOC-20090906698

PATIENT
  Sex: Female
  Weight: 67.6 kg

DRUGS (2)
  1. REMICADE [Suspect]
     Route: 042
     Dates: end: 20090921
  2. REMICADE [Suspect]
     Indication: DRUG USE FOR UNKNOWN INDICATION
     Route: 042
     Dates: end: 20090921

REACTIONS (2)
  - NAUSEA [None]
  - VOMITING [None]
